FAERS Safety Report 14711068 (Version 2)
Quarter: 2018Q2

REPORT INFORMATION
  Report Type: Spontaneous
  Country: PE (occurrence: PE)
  Receive Date: 20180403
  Receipt Date: 20180427
  Transmission Date: 20180711
  Serious: Yes (Other)
  Sender: FDA-Public Use
  Company Number: PE-ROCHE-2098797

PATIENT
  Age: 50 Year
  Sex: Female

DRUGS (2)
  1. ACTEMRA [Suspect]
     Active Substance: TOCILIZUMAB
     Indication: ARTHRITIS
     Dosage: MORE THAN 600MG, IT GOES DOWN TO 480MG
     Route: 058
     Dates: start: 201705
  2. ACTEMRA [Suspect]
     Active Substance: TOCILIZUMAB
     Indication: ARTHRITIS
     Route: 042
     Dates: start: 201602

REACTIONS (2)
  - Hepatic neoplasm [Not Recovered/Not Resolved]
  - Transaminases increased [Not Recovered/Not Resolved]
